FAERS Safety Report 6466604-X (Version None)
Quarter: 2009Q4

REPORT INFORMATION
  Report Type: 
  Country: None (occurrence: None)
  Receive Date: 20091127
  Receipt Date: 20091113
  Transmission Date: 20100525
  Serious: Yes (Death)
  Sender: FDA-Public Use
  Company Number: 2009003547

PATIENT
  Age: 75 Year
  Sex: Male
  Weight: 96.1 kg

DRUGS (4)
  1. ERLOTINIB [Suspect]
     Indication: NON-SMALL CELL LUNG CANCER
     Dosage: (150 MG), LOCAL INFILTRATION
     Dates: start: 20091102, end: 20091111
  2. BEVACIZUMAB            (INJECTION FOR INFUSION) [Suspect]
     Indication: NON-SMALL CELL LUNG CANCER
     Dosage: (15 MG/KG, Q3W, INTRAVENOUS
     Route: 042
     Dates: start: 20091110, end: 20091110
  3. TAXOL [Concomitant]
  4. CARBOPLATIN [Concomitant]

REACTIONS (3)
  - CARDIAC DISORDER [None]
  - FALL [None]
  - SUDDEN DEATH [None]
